FAERS Safety Report 21217594 (Version 1)
Quarter: 2022Q3

REPORT INFORMATION
  Report Type: Report from Study
  Country: FR (occurrence: FR)
  Receive Date: 20220816
  Receipt Date: 20220816
  Transmission Date: 20221027
  Serious: Yes (Hospitalization, Other)
  Sender: FDA-Public Use
  Company Number: FR-TAKEDA-2022TUS055880

PATIENT
  Age: 65 Year
  Sex: Male

DRUGS (20)
  1. TEDUGLUTIDE [Suspect]
     Active Substance: TEDUGLUTIDE
     Indication: Short-bowel syndrome
     Dosage: 1.430 MILLIGRAM, QD
     Route: 042
     Dates: start: 20191107, end: 20191210
  2. TEDUGLUTIDE [Suspect]
     Active Substance: TEDUGLUTIDE
     Indication: Short-bowel syndrome
     Dosage: 1.430 MILLIGRAM, QD
     Route: 042
     Dates: start: 20191107, end: 20191210
  3. TEDUGLUTIDE [Suspect]
     Active Substance: TEDUGLUTIDE
     Indication: Short-bowel syndrome
     Dosage: 1.430 MILLIGRAM, QD
     Route: 042
     Dates: start: 20191107, end: 20191210
  4. TEDUGLUTIDE [Suspect]
     Active Substance: TEDUGLUTIDE
     Indication: Short-bowel syndrome
     Dosage: 1.430 MILLIGRAM, QD
     Route: 042
     Dates: start: 20191107, end: 20191210
  5. TEDUGLUTIDE [Suspect]
     Active Substance: TEDUGLUTIDE
     Dosage: 2.000 MILLIGRAM, QD
     Route: 042
     Dates: start: 20191211, end: 20200505
  6. TEDUGLUTIDE [Suspect]
     Active Substance: TEDUGLUTIDE
     Dosage: 2.000 MILLIGRAM, QD
     Route: 042
     Dates: start: 20191211, end: 20200505
  7. TEDUGLUTIDE [Suspect]
     Active Substance: TEDUGLUTIDE
     Dosage: 2.000 MILLIGRAM, QD
     Route: 042
     Dates: start: 20191211, end: 20200505
  8. TEDUGLUTIDE [Suspect]
     Active Substance: TEDUGLUTIDE
     Dosage: 2.000 MILLIGRAM, QD
     Route: 042
     Dates: start: 20191211, end: 20200505
  9. TEDUGLUTIDE [Suspect]
     Active Substance: TEDUGLUTIDE
     Dosage: 3.000 MILLIGRAM, QD
     Route: 042
     Dates: start: 20200506, end: 20210112
  10. TEDUGLUTIDE [Suspect]
     Active Substance: TEDUGLUTIDE
     Dosage: 3.000 MILLIGRAM, QD
     Route: 042
     Dates: start: 20200506, end: 20210112
  11. TEDUGLUTIDE [Suspect]
     Active Substance: TEDUGLUTIDE
     Dosage: 3.000 MILLIGRAM, QD
     Route: 042
     Dates: start: 20200506, end: 20210112
  12. TEDUGLUTIDE [Suspect]
     Active Substance: TEDUGLUTIDE
     Dosage: 3.000 MILLIGRAM, QD
     Route: 042
     Dates: start: 20200506, end: 20210112
  13. TEDUGLUTIDE [Suspect]
     Active Substance: TEDUGLUTIDE
     Dosage: 1.400 MILLIGRAM, QD
     Route: 042
     Dates: start: 20210113, end: 20220406
  14. TEDUGLUTIDE [Suspect]
     Active Substance: TEDUGLUTIDE
     Dosage: 1.400 MILLIGRAM, QD
     Route: 042
     Dates: start: 20210113, end: 20220406
  15. TEDUGLUTIDE [Suspect]
     Active Substance: TEDUGLUTIDE
     Dosage: 1.400 MILLIGRAM, QD
     Route: 042
     Dates: start: 20210113, end: 20220406
  16. TEDUGLUTIDE [Suspect]
     Active Substance: TEDUGLUTIDE
     Dosage: 1.400 MILLIGRAM, QD
     Route: 042
     Dates: start: 20210113, end: 20220406
  17. CEFTRIAXONE SODIUM [Concomitant]
     Active Substance: CEFTRIAXONE SODIUM
     Indication: Vascular device infection
     Dosage: 2000 MILLIGRAM, QD
     Route: 042
     Dates: start: 20181020, end: 20181028
  18. CEFTRIAXONE SODIUM [Concomitant]
     Active Substance: CEFTRIAXONE SODIUM
     Dosage: 1000 MILLIGRAM, QD
     Route: 042
     Dates: start: 20211022, end: 20211104
  19. FERINJECT [Concomitant]
     Active Substance: FERRIC CARBOXYMALTOSE
     Indication: Mineral deficiency
     Dosage: 1500 MILLIGRAM, QD
     Route: 042
     Dates: start: 20211216, end: 20211216
  20. PIPERACILLIN SODIUM\TAZOBACTAM SODIUM [Concomitant]
     Active Substance: PIPERACILLIN SODIUM\TAZOBACTAM SODIUM
     Indication: Vascular device infection
     Dosage: 4000 MILLIGRAM, TID
     Route: 042
     Dates: start: 20210730, end: 20210813

REACTIONS (2)
  - Klebsiella infection [Recovered/Resolved]
  - Vascular device infection [Recovered/Resolved]

NARRATIVE: CASE EVENT DATE: 20220606
